FAERS Safety Report 6392151-X (Version None)
Quarter: 2009Q4

REPORT INFORMATION
  Report Type: 
  Country: None (occurrence: None)
  Receive Date: 20091007
  Receipt Date: 20090925
  Transmission Date: 20100525
  Serious: Yes (Other)
  Sender: FDA-Public Use
  Company Number: US-JNJFOC-20090908456

PATIENT
  Age: 4 Year
  Sex: Female
  Weight: 22.23 kg

DRUGS (2)
  1. CHILDREN'S TYLENOL PLUS MULTI-SYMPTOM COLD GRAPE [Suspect]
     Indication: EAR INFECTION
     Dosage: UNDER 1 TEASPOON 2-3 TIMES FOR 2 DAYS
     Route: 048
     Dates: start: 20090914, end: 20090915
  2. CHILDREN'S TYLENOL PLUS COUGH + RUNNY NOSE CHERRY [Suspect]
     Indication: EAR INFECTION
     Route: 048
     Dates: start: 20090915, end: 20090916

REACTIONS (2)
  - TRANSMISSION OF AN INFECTIOUS AGENT VIA A MEDICINAL PRODUCT [None]
  - VOMITING [None]
